FAERS Safety Report 10153328 (Version 1)
Quarter: 2014Q2

REPORT INFORMATION
  Report Type: Spontaneous
  Country: MX (occurrence: MX)
  Receive Date: 20140505
  Receipt Date: 20140505
  Transmission Date: 20141212
  Serious: Yes (Other)
  Sender: FDA-Public Use
  Company Number: MX-JNJFOC-20140420710

PATIENT
  Age: 64 Year
  Sex: Male

DRUGS (1)
  1. INVOKANA [Suspect]
     Indication: BLOOD GLUCOSE FLUCTUATION
     Route: 048

REACTIONS (1)
  - Urinary nitrogen increased [Unknown]
